FAERS Safety Report 5375020-3 (Version None)
Quarter: 2007Q2

REPORT INFORMATION
  Report Type: 
  Country: None (occurrence: None)
  Receive Date: 20070629
  Receipt Date: 20070521
  Transmission Date: 20071010
  Serious: No
  Sender: FDA-Public Use
  Company Number: A0652155A

PATIENT
  Age: 76 Year
  Sex: Female

DRUGS (8)
  1. FLOVENT [Suspect]
     Indication: ASTHMA
     Dosage: 1PUFF PER DAY
     Route: 055
     Dates: start: 20000701
  2. ALLEGRA [Concomitant]
  3. SINGULAIR [Concomitant]
  4. LISINOPRIL [Concomitant]
  5. TRIAMTERENE [Concomitant]
  6. PREVACID [Concomitant]
  7. POTASSIUM ACETATE [Concomitant]
  8. ALBUTEROL [Concomitant]

REACTIONS (2)
  - GASTROOESOPHAGEAL REFLUX DISEASE [None]
  - UPPER RESPIRATORY TRACT INFECTION [None]
